FAERS Safety Report 8200551-8 (Version None)
Quarter: 2012Q1

REPORT INFORMATION
  Report Type: 
  Country: None (occurrence: None)
  Receive Date: 20120312
  Receipt Date: 20120229
  Transmission Date: 20120608
  Serious: Yes (Hospitalization)
  Sender: FDA-Public Use
  Company Number: US-ASTRAZENECA-2012SE05247

PATIENT
  Age: 70 Year
  Sex: Female
  Weight: 75.7 kg

DRUGS (20)
  1. SYMBICORT [Suspect]
     Indication: BRONCHITIS
     Dosage: 160/4.5 MCG, 2 PUFF BID
     Route: 055
     Dates: start: 20111114
  2. MULTI-VITAMINS [Concomitant]
     Dosage: DAILY
     Route: 048
  3. OS CAL 500 [Concomitant]
     Route: 048
  4. ZESTRIL [Suspect]
     Route: 048
  5. LASIX [Concomitant]
     Route: 048
  6. MICRO-K 10 [Concomitant]
     Route: 048
  7. ARMODAFINIL [Concomitant]
     Route: 048
  8. VITAMIN D [Concomitant]
     Route: 048
  9. DIGOXIN [Concomitant]
     Route: 048
  10. LANOXIN [Concomitant]
     Route: 048
  11. POTASSIUM CL [Concomitant]
     Route: 048
  12. MEDROL [Concomitant]
  13. DIGOXIN [Concomitant]
     Route: 048
  14. FLUCONAZOLE [Concomitant]
     Route: 048
  15. MUSINEX [Concomitant]
     Route: 048
  16. LEVAQUIN [Concomitant]
  17. PROAIR HFA [Concomitant]
     Dosage: 2 PUFFS PER 4 HOURS, PRN
  18. SYMBICORT [Suspect]
     Indication: CHRONIC OBSTRUCTIVE PULMONARY DISEASE
     Dosage: 160/4.5 MCG, 2 PUFF BID
     Route: 055
     Dates: start: 20111114
  19. SYMBICORT [Suspect]
     Indication: ASTHMA
     Dosage: 160/4.5 MCG, 2 PUFF BID
     Route: 055
     Dates: start: 20111114
  20. VENTOLIN HFA [Concomitant]
     Dosage: 2 PUFFS, PRN

REACTIONS (5)
  - COUGH [None]
  - BRONCHITIS [None]
  - CHRONIC OBSTRUCTIVE PULMONARY DISEASE [None]
  - ASTHMA [None]
  - ALOPECIA [None]
